FAERS Safety Report 8511514-7 (Version None)
Quarter: 2012Q3

REPORT INFORMATION
  Report Type: 
  Country: None (occurrence: None)
  Receive Date: 20120716
  Receipt Date: 20120711
  Transmission Date: 20120928
  Serious: Yes (Hospitalization, Other)
  Sender: FDA-Public Use
  Company Number: US-AMGEN-USASP2011016810

PATIENT
  Age: 51 Year
  Sex: Female
  Weight: 107.48 kg

DRUGS (8)
  1. ENBREL [Suspect]
     Dosage: 50 MG, QWK
     Route: 058
     Dates: start: 20111001
  2. SYMBICORT [Concomitant]
     Indication: ASTHMA
     Dosage: UNK
  3. ENBREL [Suspect]
     Indication: RHEUMATOID ARTHRITIS
     Dosage: 50 MG, QWK
     Route: 058
     Dates: start: 20070101, end: 20100901
  4. METHOTREXATE [Concomitant]
     Dosage: UNK
     Dates: end: 20100901
  5. HYDROCODEINE [Concomitant]
     Indication: BACK PAIN
     Dosage: UNK
  6. PREDNISONE [Concomitant]
     Indication: RHEUMATOID ARTHRITIS
     Dosage: 10 MG, QD
     Route: 048
  7. GABAPENTIN [Concomitant]
     Indication: RADICULOPATHY
     Dosage: 600 MG, QD
     Route: 048
  8. FOSAMAX [Concomitant]
     Indication: PROPHYLAXIS
     Dosage: UNK UNK, QWK

REACTIONS (9)
  - CHRONIC OBSTRUCTIVE PULMONARY DISEASE [None]
  - CELLULITIS [None]
  - LOOSE TOOTH [None]
  - RHEUMATOID ARTHRITIS [None]
  - WEIGHT INCREASED [None]
  - PLEURAL EFFUSION [None]
  - GINGIVITIS [None]
  - HERPES ZOSTER [None]
  - PNEUMONIA [None]
